FAERS Safety Report 8773236 (Version 1)
Quarter: 2012Q4

REPORT INFORMATION
  Report Type: 
  Country: ZA (occurrence: ZA)
  Receive Date: 20120907
  Receipt Date: 20120907
  Transmission Date: 20130627
  Serious: Yes (Other)
  Sender: FDA-Public Use
  Company Number: ZA-BRISTOL-MYERS SQUIBB COMPANY-16908824

PATIENT
  Age: 59 Year
  Sex: Female

DRUGS (6)
  1. HYDROXYCARBAMIDE [Suspect]
     Indication: CHRONIC MYELOID LEUKAEMIA
  2. EFAVIRENZ [Interacting]
     Indication: HIV INFECTION
  3. RIFAMPICIN [Interacting]
     Indication: TUBERCULOSIS
  4. NILOTINIB [Interacting]
     Indication: CHRONIC MYELOID LEUKAEMIA
  5. LAMIVUDINE [Suspect]
     Indication: HIV INFECTION
  6. TENOFOVIR DISOPROXIL FUMARATE [Suspect]
     Indication: HIV INFECTION

REACTIONS (4)
  - Tuberculosis [Unknown]
  - Hepatotoxicity [Unknown]
  - Drug interaction [Unknown]
  - Drug level below therapeutic [Unknown]
